FAERS Safety Report 14005370 (Version 1)
Quarter: 2017Q3

REPORT INFORMATION
  Report Type: Spontaneous
  Country: DK (occurrence: DK)
  Receive Date: 20170922
  Receipt Date: 20170922
  Transmission Date: 20171128
  Serious: Yes (Hospitalization)
  Sender: FDA-Public Use
  Company Number: DK-PFIZER INC-2017405568

PATIENT
  Age: 72 Year
  Sex: Male

DRUGS (5)
  1. ADRIAMYCIN [Suspect]
     Active Substance: DOXORUBICIN HYDROCHLORIDE
     Indication: HODGKIN^S DISEASE
     Dosage: UNK
     Route: 042
     Dates: start: 20141223, end: 20150211
  2. FRAGMIN [Concomitant]
     Active Substance: DALTEPARIN SODIUM
     Indication: ATRIAL FIBRILLATION
     Dosage: UNK
  3. VINBLASTINE [Concomitant]
     Active Substance: VINBLASTINE
     Indication: HODGKIN^S DISEASE
     Dosage: UNK
     Dates: start: 20141223
  4. BLEOMYCIN [Concomitant]
     Active Substance: BLEOMYCIN SULFATE
     Indication: HODGKIN^S DISEASE
     Dosage: UNK
     Dates: start: 20141223
  5. DACARBAZINE. [Concomitant]
     Active Substance: DACARBAZINE
     Indication: HODGKIN^S DISEASE
     Dosage: UNK
     Dates: start: 20141223

REACTIONS (11)
  - Cardiac failure chronic [Unknown]
  - Myocardial infarction [Recovered/Resolved]
  - Atrial fibrillation [Unknown]
  - Pain [Recovered/Resolved]
  - Memory impairment [Recovered/Resolved]
  - Dizziness [Unknown]
  - Fall [Recovered/Resolved with Sequelae]
  - Congestive cardiomyopathy [Unknown]
  - Cardiac pacemaker insertion [Recovered/Resolved]
  - Syncope [Recovered/Resolved]
  - Cardiac arrest [Recovered/Resolved]

NARRATIVE: CASE EVENT DATE: 2014
